FAERS Safety Report 10714134 (Version 2)
Quarter: 2015Q1

REPORT INFORMATION
  Report Type: Spontaneous
  Country: BR (occurrence: BR)
  Receive Date: 20150115
  Receipt Date: 20150305
  Transmission Date: 20150721
  Serious: Yes (Hospitalization, Other)
  Sender: FDA-Public Use
  Company Number: BR-PFIZER INC-2015012848

PATIENT
  Age: 61 Year
  Sex: Female

DRUGS (3)
  1. AROMASIN [Suspect]
     Active Substance: EXEMESTANE
     Indication: BREAST CANCER
     Dosage: 25 MG, DAILY
     Route: 048
     Dates: start: 20091215, end: 20120309
  2. AROMASIN [Suspect]
     Active Substance: EXEMESTANE
     Dosage: 25 MG, DAILY
     Route: 048
     Dates: start: 20120815
  3. FRONTAL [Concomitant]
     Active Substance: ALPRAZOLAM
     Dosage: 0.25 MG (1 TABLET), DAILY
     Dates: start: 201112

REACTIONS (2)
  - Second primary malignancy [Recovered/Resolved]
  - Endometrial cancer [Recovered/Resolved]

NARRATIVE: CASE EVENT DATE: 201111
